FAERS Safety Report 6254241-1 (Version None)
Quarter: 2009Q2

REPORT INFORMATION
  Report Type: 
  Country: None (occurrence: None)
  Receive Date: 20090630
  Receipt Date: 20081119
  Transmission Date: 20091009
  Serious: Yes (Hospitalization)
  Sender: FDA-Public Use
  Company Number: US-SEPTODONT-200800221

PATIENT
  Age: 56 Year
  Sex: Male

DRUGS (3)
  1. ARTICAINE HYDROCHLORIDE WITH EPINEPHRINE 1:100000 [Suspect]
     Indication: LOCAL ANAESTHESIA
     Dates: start: 20081111, end: 20081111
  2. AMOXICILLIN (TRADENAME NOT SPECIFIED) (AMOXICILLIN TRIHYDRATE) [Concomitant]
  3. PREDNISONE (TRADENAME NOT SPECIFIED) (PREDNISONE) [Concomitant]

REACTIONS (1)
  - URTICARIA [None]
